FAERS Safety Report 21716371 (Version 1)
Quarter: 2022Q4

REPORT INFORMATION
  Report Type: Other
  Country: US (occurrence: US)
  Receive Date: 20221212
  Receipt Date: 20221212
  Transmission Date: 20230113
  Serious: No
  Sender: FDA-Public Use
  Company Number: US-GBT-014556

PATIENT
  Sex: Male

DRUGS (6)
  1. OXBRYTA [Suspect]
     Active Substance: VOXELOTOR
     Indication: Sickle cell disease
     Route: 048
  2. OXBRYTA [Suspect]
     Active Substance: VOXELOTOR
     Indication: Sickle cell disease
     Route: 048
     Dates: start: 202202
  3. HYDROXYUREA [Concomitant]
     Active Substance: HYDROXYUREA
  4. ENDARI [Concomitant]
     Active Substance: GLUTAMINE
  5. MORPHINE SULFATE [Concomitant]
     Active Substance: MORPHINE SULFATE
  6. MS CONTIN [Concomitant]
     Active Substance: MORPHINE SULFATE

REACTIONS (6)
  - Faeces discoloured [Unknown]
  - Headache [Unknown]
  - Discoloured vomit [Unknown]
  - Abdominal pain upper [Unknown]
  - Off label use [Unknown]
  - Therapy interrupted [Unknown]
